FAERS Safety Report 5006962-6 (Version None)
Quarter: 2006Q2

REPORT INFORMATION
  Report Type: 
  Country: None (occurrence: None)
  Receive Date: 20060517
  Receipt Date: 20060512
  Transmission Date: 20061013
  Serious: Yes (Other)
  Sender: FDA-Public Use
  Company Number: 2006-04-1779

PATIENT
  Age: 47 Year
  Sex: Female
  Weight: 65 kg

DRUGS (10)
  1. AERIUS (DESLORATADINE) TABLETS [Suspect]
     Indication: CONJUNCTIVITIS
     Dosage: 5MG QD* ORAL
     Route: 048
     Dates: start: 20060315, end: 20060419
  2. AERIUS (DESLORATADINE) TABLETS [Suspect]
     Indication: RHINITIS ALLERGIC
     Dosage: 5MG QD* ORAL
     Route: 048
     Dates: start: 20060315, end: 20060419
  3. AERIUS (DESLORATADINE) TABLETS [Suspect]
     Indication: CONJUNCTIVITIS
     Dosage: 5MG QD* ORAL
     Route: 048
     Dates: start: 20060315
  4. AERIUS (DESLORATADINE) TABLETS [Suspect]
     Indication: RHINITIS ALLERGIC
     Dosage: 5MG QD* ORAL
     Route: 048
     Dates: start: 20060315
  5. AERIUS (DESLORATADINE) TABLETS [Suspect]
     Indication: CONJUNCTIVITIS
     Dosage: 5MG QD* ORAL
     Route: 048
     Dates: start: 20060501
  6. AERIUS (DESLORATADINE) TABLETS [Suspect]
     Indication: RHINITIS ALLERGIC
     Dosage: 5MG QD* ORAL
     Route: 048
     Dates: start: 20060501
  7. LEVOCETIRIZINE TABLETS [Suspect]
     Indication: RHINITIS ALLERGIC
     Dosage: 5MG QD ORAL
     Route: 048
     Dates: start: 20060315, end: 20060419
  8. LEVOCETIRIZINE TABLETS [Suspect]
     Indication: RHINITIS ALLERGIC
     Dosage: 5MG QD ORAL
     Route: 048
     Dates: start: 20060101
  9. LEVOCETIRIZINE TABLETS [Suspect]
     Indication: RHINITIS ALLERGIC
     Dosage: 5MG QD ORAL
     Route: 048
     Dates: start: 20060315
  10. MELOXICAM SUPPOSITORIES [Concomitant]

REACTIONS (9)
  - ALANINE AMINOTRANSFERASE INCREASED [None]
  - ASPARTATE AMINOTRANSFERASE INCREASED [None]
  - FACE OEDEMA [None]
  - FACIAL PALSY [None]
  - FEAR [None]
  - HYPOAESTHESIA ORAL [None]
  - NO REACTION ON PREVIOUS EXPOSURE TO DRUG [None]
  - REFUSAL OF TREATMENT BY PATIENT [None]
  - VIRAL INFECTION [None]
